FAERS Safety Report 5521221-0 (Version None)
Quarter: 2007Q4

REPORT INFORMATION
  Report Type: 
  Country: None (occurrence: None)
  Receive Date: 20071119
  Receipt Date: 20071112
  Transmission Date: 20080405
  Serious: Yes (Hospitalization)
  Sender: FDA-Public Use
  Company Number: FI-ASTRAZENECA-2007SE06067

PATIENT
  Sex: Female

DRUGS (3)
  1. CRESTOR [Suspect]
     Route: 048
     Dates: start: 20070101, end: 20070401
  2. LINATIL [Concomitant]
     Dosage: 20 MG 1/2 X 1
     Route: 048
  3. PRIMASPAN [Concomitant]
     Route: 048

REACTIONS (1)
  - BILE DUCT CANCER [None]
